FAERS Safety Report 6214072-5 (Version None)
Quarter: 2009Q2

REPORT INFORMATION
  Report Type: 
  Country: None (occurrence: None)
  Receive Date: 20090601
  Receipt Date: 20090601
  Transmission Date: 20091009
  Serious: Yes (Hospitalization)
  Sender: FDA-Public Use
  Company Number: None

PATIENT
  Age: 89 Year
  Sex: Male
  Weight: 95 kg

DRUGS (7)
  1. WARFARIN SODIUM [Suspect]
     Indication: ATRIAL FIBRILLATION
     Dosage: 2 MG QD PO
     Route: 048
  2. WARFARIN SODIUM [Suspect]
     Indication: ATRIAL FLUTTER
     Dosage: 2 MG QD PO
     Route: 048
  3. METOPROLOL SUCCINATE [Concomitant]
  4. K-DUR [Concomitant]
  5. LASIX [Concomitant]
  6. LEXAPRO [Concomitant]
  7. NEXIUM [Concomitant]

REACTIONS (3)
  - FALL [None]
  - INTERNATIONAL NORMALISED RATIO INCREASED [None]
  - THALAMUS HAEMORRHAGE [None]
